FAERS Safety Report 23444770 (Version 1)
Quarter: 2024Q1

REPORT INFORMATION
  Report Type: Spontaneous
  Country: FR (occurrence: FR)
  Receive Date: 20240125
  Receipt Date: 20240125
  Transmission Date: 20240409
  Serious: Yes (Hospitalization)
  Sender: FDA-Public Use
  Company Number: None

PATIENT
  Age: 71 Year
  Sex: Male

DRUGS (1)
  1. LIBTAYO [Suspect]
     Active Substance: CEMIPLIMAB-RWLC
     Indication: Lung adenocarcinoma
     Dates: start: 20231121, end: 20231212

REACTIONS (2)
  - Liver injury [Recovering/Resolving]
  - Portal venous gas [Recovered/Resolved]

NARRATIVE: CASE EVENT DATE: 20231201
